FAERS Safety Report 13346410 (Version 3)
Quarter: 2017Q2

REPORT INFORMATION
  Report Type: Report from Study
  Country: US (occurrence: US)
  Receive Date: 20170317
  Receipt Date: 20170518
  Transmission Date: 20170830
  Serious: Yes (Hospitalization, Other)
  Sender: FDA-Public Use
  Company Number: US-GILEAD-2017-0262586

PATIENT
  Age: 67 Year
  Sex: Male
  Weight: 110 kg

DRUGS (2)
  1. RANOLAZINE. [Suspect]
     Active Substance: RANOLAZINE
     Indication: ANGINA PECTORIS
     Dosage: 1000 UNK, UNK
     Route: 048
  2. RANOLAZINE. [Suspect]
     Active Substance: RANOLAZINE
     Dosage: 500 MG, UNK
     Route: 048

REACTIONS (2)
  - Fall [Unknown]
  - Femur fracture [Unknown]

NARRATIVE: CASE EVENT DATE: 20170306
